FAERS Safety Report 6298026-9 (Version None)
Quarter: 2009Q3

REPORT INFORMATION
  Report Type: 
  Country: None (occurrence: None)
  Receive Date: 20090805
  Receipt Date: 20090730
  Transmission Date: 20100115
  Serious: Yes (Hospitalization, Other)
  Sender: FDA-Public Use
  Company Number: US-ELI_LILLY_AND_COMPANY-US200907007095

PATIENT
  Sex: Female

DRUGS (12)
  1. HUMALOG [Suspect]
     Dosage: UNK, AS NEEDED
     Dates: start: 19990101
  2. GABAPENTIN [Concomitant]
     Dosage: 600 MG, 3/D
  3. LISINOPRIL [Concomitant]
     Dosage: 10 MG, EACH MORNING
  4. DIPHENOXYLATE HCL AND ATROPINE SULFATE [Concomitant]
     Dosage: 1 D/F, EVERY 8 HRS
  5. SIMVASTATIN [Concomitant]
     Dosage: 80 MG, EACH EVENING
  6. OXYCODONE HCL AND ACETAMINOPHEN [Concomitant]
     Indication: PAIN
     Dosage: 1 U, EACH MORNING
  7. OXYCODONE HCL AND ACETAMINOPHEN [Concomitant]
     Dosage: 1 D/F, EACH EVENING
  8. TYLENOL (CAPLET) [Concomitant]
     Dosage: 500 MG, EACH MORNING
  9. TYLENOL [Concomitant]
     Dosage: 500 MG, EACH EVENING
  10. CITRACAL [Concomitant]
     Dosage: 800 MG, EACH MORNING
  11. CITRACAL [Concomitant]
     Dosage: 800 MG, EACH EVENING
  12. LANTUS [Concomitant]
     Dosage: 17 MG, EACH EVENING

REACTIONS (13)
  - ASTHENIA [None]
  - BLOOD GLUCOSE DECREASED [None]
  - BLOOD GLUCOSE INCREASED [None]
  - CEREBROVASCULAR ACCIDENT [None]
  - DEPRESSED LEVEL OF CONSCIOUSNESS [None]
  - DYSARTHRIA [None]
  - FALL [None]
  - FEELING ABNORMAL [None]
  - FEMUR FRACTURE [None]
  - HERPES ZOSTER [None]
  - HYPOAESTHESIA [None]
  - PERONEAL NERVE PALSY [None]
  - TRANSIENT ISCHAEMIC ATTACK [None]
